FAERS Safety Report 8518025-3 (Version None)
Quarter: 2012Q3

REPORT INFORMATION
  Report Type: 
  Country: None (occurrence: None)
  Receive Date: 20120718
  Receipt Date: 20110811
  Transmission Date: 20120928
  Serious: No
  Sender: FDA-Public Use
  Company Number: US-BRISTOL-MYERS SQUIBB COMPANY-15952369

PATIENT
  Age: 80 Year
  Sex: Male

DRUGS (2)
  1. ALLEGRA [Interacting]
     Indication: HEADACHE
     Dosage: FILM COATED TABS REDUCED TO 60MG DAILY
     Route: 048
  2. COUMADIN [Suspect]

REACTIONS (2)
  - DRUG INTERACTION [None]
  - INTERNATIONAL NORMALISED RATIO DECREASED [None]
